FAERS Safety Report 6037716-X (Version None)
Quarter: 2009Q1

REPORT INFORMATION
  Report Type: 
  Country: None (occurrence: None)
  Receive Date: 20090114
  Receipt Date: 20090109
  Transmission Date: 20090719
  Serious: Yes (Other)
  Sender: FDA-Public Use
  Company Number: US-GENENTECH-272381

PATIENT
  Sex: Female
  Weight: 57.596 kg

DRUGS (4)
  1. RITUXAN [Suspect]
     Indication: LYMPHOMA
     Dosage: 4 UNK, 1/WEEK
     Dates: start: 20081105
  2. LEVOTHYROXINE SODIUM [Concomitant]
     Indication: DRUG USE FOR UNKNOWN INDICATION
     Dosage: 0.75 MG, QD
  3. LYRICA [Concomitant]
     Indication: DRUG USE FOR UNKNOWN INDICATION
     Dosage: 75 MG, BID
  4. ALENDRONATE SODIUM [Concomitant]
     Indication: DRUG USE FOR UNKNOWN INDICATION
     Dosage: UNK MG, 1/WEEK

REACTIONS (2)
  - ENURESIS [None]
  - IMMOBILE [None]
